FAERS Safety Report 9435298 (Version 2)
Quarter: 2013Q3

REPORT INFORMATION
  Report Type: Spontaneous
  Country: NO (occurrence: NO)
  Receive Date: 20130801
  Receipt Date: 20130809
  Transmission Date: 20140515
  Serious: Yes (Other)
  Sender: FDA-Public Use
  Company Number: NO-JNJFOC-20130715602

PATIENT
  Age: 29 Year
  Sex: Female

DRUGS (2)
  1. SIMPONI [Suspect]
     Indication: ANKYLOSING SPONDYLITIS
     Route: 058
     Dates: start: 20130704, end: 20130716
  2. IBUX [Concomitant]
     Dosage: DURATION: YEARS
     Route: 065

REACTIONS (4)
  - Anaphylactic reaction [Recovering/Resolving]
  - Throat tightness [Recovering/Resolving]
  - Tongue oedema [Recovering/Resolving]
  - Rash generalised [Recovering/Resolving]
